FAERS Safety Report 25842254 (Version 1)
Quarter: 2025Q3

REPORT INFORMATION
  Report Type: Spontaneous
  Country: US (occurrence: None)
  Receive Date: 20250924
  Receipt Date: 20250924
  Transmission Date: 20251020
  Serious: Yes (Hospitalization)
  Sender: FDA-CTU
  Company Number: None

PATIENT
  Age: 82 Year
  Sex: Female
  Weight: 59.4 kg

DRUGS (6)
  1. CLINDAMYCIN [Suspect]
     Active Substance: CLINDAMYCIN
     Indication: Tooth extraction
     Route: 048
     Dates: start: 20250905, end: 20250910
  2. CLINDAMYCIN [Suspect]
     Active Substance: CLINDAMYCIN
     Indication: Ectopic tooth
  3. CLINDAMYCIN [Suspect]
     Active Substance: CLINDAMYCIN
     Indication: Postoperative care
  4. AMLODIPINE [Concomitant]
     Active Substance: AMLODIPINE BESYLATE
  5. hearing aids [Concomitant]
  6. Multi vitamin/mineral supplement [Concomitant]

REACTIONS (7)
  - Abdominal distension [None]
  - Pyrexia [None]
  - Pain [None]
  - Diarrhoea [None]
  - Urinary tract infection [None]
  - Therapy interrupted [None]
  - Drug monitoring procedure not performed [None]

NARRATIVE: CASE EVENT DATE: 20250908
